FAERS Safety Report 25348077 (Version 3)
Quarter: 2025Q2

REPORT INFORMATION
  Report Type: Spontaneous
  Country: IT (occurrence: IT)
  Receive Date: 20250522
  Receipt Date: 20250616
  Transmission Date: 20250716
  Serious: Yes (Life-Threatening)
  Sender: PFIZER
  Company Number: IT-PFIZER INC-PV202500060501

PATIENT
  Age: 14 Year
  Sex: Female
  Weight: 55.4 kg

DRUGS (8)
  1. DEXMEDETOMIDINE HYDROCHLORIDE [Interacting]
     Active Substance: DEXMEDETOMIDINE HYDROCHLORIDE
     Indication: Sedation
     Route: 040
     Dates: start: 20240312
  2. PROPOFOL [Interacting]
     Active Substance: PROPOFOL
     Indication: Sedation
     Route: 040
     Dates: start: 20240312, end: 20240312
  3. THIOGUANINE [Concomitant]
     Active Substance: THIOGUANINE
  4. ACYCLOVIR [Concomitant]
     Active Substance: ACYCLOVIR
  5. AMLODIPINE [Concomitant]
     Active Substance: AMLODIPINE BESYLATE
  6. LANSOPRAZOLE [Concomitant]
     Active Substance: LANSOPRAZOLE
  7. LEUPROLIDE ACETATE [Concomitant]
     Active Substance: LEUPROLIDE ACETATE
  8. ONDANSETRON [Concomitant]
     Active Substance: ONDANSETRON
     Indication: Regurgitation
     Route: 040
     Dates: start: 20240312, end: 20240312

REACTIONS (3)
  - Drug interaction [Unknown]
  - Apnoea [Unknown]
  - Sedation [Unknown]

NARRATIVE: CASE EVENT DATE: 20240312
